FAERS Safety Report 4542097-4 (Version None)
Quarter: 2004Q4

REPORT INFORMATION
  Report Type: 
  Country: None (occurrence: None)
  Receive Date: 20041230
  Receipt Date: 20041006
  Transmission Date: 20050328
  Serious: Yes (Disabling)
  Sender: FDA-Public Use
  Company Number: US-MERCK-0410USA00876

PATIENT
  Age: 62 Year
  Sex: Female
  Weight: 82 kg

DRUGS (7)
  1. VIOXX [Suspect]
     Indication: RHEUMATOID ARTHRITIS
     Route: 048
     Dates: start: 20020401, end: 20020901
  2. LIPITOR [Concomitant]
     Route: 065
  3. LEVOTHROID [Concomitant]
     Indication: HYPOTHYROIDISM
     Route: 048
  4. FOLIC ACID [Concomitant]
     Route: 048
  5. METHOTREXATE [Concomitant]
     Indication: ARTHRITIS
     Route: 048
     Dates: start: 20000201, end: 20040401
  6. PRILOSEC [Concomitant]
     Indication: GASTROOESOPHAGEAL REFLUX DISEASE
     Route: 048
  7. MINOCYCLINE [Concomitant]
     Indication: ARTHRITIS
     Route: 065
     Dates: start: 20001001, end: 20020801

REACTIONS (6)
  - BRONCHITIS [None]
  - DRY THROAT [None]
  - HEADACHE [None]
  - HOARSENESS [None]
  - PHARYNGOLARYNGEAL PAIN [None]
  - TREATMENT NONCOMPLIANCE [None]
